FAERS Safety Report 6880162-7 (Version None)
Quarter: 2010Q3

REPORT INFORMATION
  Report Type: 
  Country: None (occurrence: None)
  Receive Date: 20100728
  Receipt Date: 20100304
  Transmission Date: 20110219
  Serious: No
  Sender: FDA-Public Use
  Company Number: US-BRISTOL-MYERS SQUIBB COMPANY-15003114

PATIENT
  Sex: Female

DRUGS (1)
  1. SPRYCEL [Suspect]
     Indication: CHRONIC MYELOID LEUKAEMIA
     Dates: start: 20100101

REACTIONS (2)
  - HEADACHE [None]
  - PERIORBITAL OEDEMA [None]
